FAERS Safety Report 4731058-8 (Version None)
Quarter: 2005Q3

REPORT INFORMATION
  Report Type: 
  Country: None (occurrence: None)
  Receive Date: 20050726
  Receipt Date: 20040218
  Transmission Date: 20060218
  Serious: Yes (Life-Threatening, Hospitalization)
  Sender: FDA-Public Use
  Company Number: 04GER0082

PATIENT
  Age: 69 Year
  Sex: Male

DRUGS (10)
  1. INJ TIROFIBAN HCL(TIROFIBAN HYDROCHLORIDE) (INJECTION) [Suspect]
     Indication: ACUTE CORONARY SYNDROME
     Dates: start: 20040122, end: 20040123
  2. AGGRASTAT [Suspect]
     Dosage: N/A, INTRAVENOUS
     Route: 042
     Dates: start: 20040122, end: 20040123
  3. ASPIRIN [Concomitant]
  4. CLOPIDOGREL BISULFATE [Concomitant]
  5. ESOMPPRAZOLE MAGNESIUM [Concomitant]
  6. HEPARIN [Concomitant]
  7. METOCLOPRAMIDE HYDROCHLORIDE [Concomitant]
  8. METOPROLOL SUCCINATE [Concomitant]
  9. NADROPARIN CALCIUM [Concomitant]
  10. TRAMADOL HCL [Concomitant]

REACTIONS (1)
  - THROMBOCYTOPENIA [None]
